FAERS Safety Report 7225482-1 (Version None)
Quarter: 2011Q1

REPORT INFORMATION
  Report Type: 
  Country: None (occurrence: None)
  Receive Date: 20110113
  Receipt Date: 20110106
  Transmission Date: 20110831
  Serious: Yes (Hospitalization)
  Sender: FDA-Public Use
  Company Number: US-MERCK-1012USA01749

PATIENT
  Age: 83 Year
  Sex: Female

DRUGS (2)
  1. HYZAAR [Suspect]
     Route: 048
     Dates: start: 20031201, end: 20101020
  2. COREG [Concomitant]
     Route: 065

REACTIONS (3)
  - BRONCHITIS [None]
  - HYPONATRAEMIA [None]
  - SEPSIS [None]
